FAERS Safety Report 5858431-9 (Version None)
Quarter: 2008Q3

REPORT INFORMATION
  Report Type: 
  Country: None (occurrence: None)
  Receive Date: 20080826
  Receipt Date: 20080807
  Transmission Date: 20090109
  Serious: Yes (Other)
  Sender: FDA-Public Use
  Company Number: PHHY2008FR17958

PATIENT
  Sex: Male

DRUGS (2)
  1. LESCOL [Suspect]
     Dosage: UNK
     Route: 048
     Dates: start: 20030101
  2. ANTIBIOTICS [Concomitant]
     Indication: DENTAL IMPLANTATION
     Dosage: UNK
     Dates: start: 20080501

REACTIONS (6)
  - CATARACT [None]
  - DENTAL IMPLANTATION [None]
  - GASTRIC DISORDER [None]
  - INSOMNIA [None]
  - MYALGIA [None]
  - PARAESTHESIA [None]
